FAERS Safety Report 7369586-1 (Version None)
Quarter: 2011Q1

REPORT INFORMATION
  Report Type: 
  Country: None (occurrence: None)
  Receive Date: 20110323
  Receipt Date: 20110311
  Transmission Date: 20110831
  Serious: Yes (Hospitalization, Disabling)
  Sender: FDA-Public Use
  Company Number: KR-WATSON-2011-03394

PATIENT
  Age: 11 Year
  Sex: Female

DRUGS (1)
  1. TACROLIMUS [Suspect]
     Indication: IMMUNOSUPPRESSION
     Dosage: 0.1 MG/KG, BID

REACTIONS (14)
  - TOXIC ENCEPHALOPATHY [None]
  - ADJUSTMENT DISORDER [None]
  - ENCEPHALOMALACIA [None]
  - MOOD SWINGS [None]
  - AGGRESSION [None]
  - HEMIPARESIS [None]
  - DYSARTHRIA [None]
  - GAIT DISTURBANCE [None]
  - IRRITABILITY [None]
  - CEREBRAL ARTERY STENOSIS [None]
  - HYPERTENSION [None]
  - POSTERIOR REVERSIBLE ENCEPHALOPATHY SYNDROME [None]
  - HEMIPLEGIA [None]
  - NEUROLOGICAL SYMPTOM [None]
